FAERS Safety Report 22518394 (Version 2)
Quarter: 2023Q2

REPORT INFORMATION
  Report Type: Spontaneous
  Country: GB (occurrence: GB)
  Receive Date: 20230605
  Receipt Date: 20230608
  Transmission Date: 20230722
  Serious: Yes (Death, Disabling, Other)
  Sender: FDA-Public Use
  Company Number: GB-MHRA-MED-202305251740344380-HTMKN

PATIENT
  Age: 78 Year
  Sex: Male
  Weight: 88 kg

DRUGS (5)
  1. BERIPLEX P/N [Suspect]
     Active Substance: COAGULATION FACTOR IX HUMAN\COAGULATION FACTOR VII HUMAN\COAGULATION FACTOR X HUMAN\PROTEIN C\PROTEI
     Indication: Procoagulant therapy
     Dosage: 2500 INTERNATIONAL UNIT
     Route: 065
     Dates: start: 20230402
  2. BERIPLEX P/N [Suspect]
     Active Substance: COAGULATION FACTOR IX HUMAN\COAGULATION FACTOR VII HUMAN\COAGULATION FACTOR X HUMAN\PROTEIN C\PROTEI
     Indication: Procoagulant therapy
     Dosage: 2500 INTERNATIONAL UNIT
     Route: 065
     Dates: start: 20230402
  3. VITAMIN K [Concomitant]
     Active Substance: PHYTONADIONE
     Indication: Product used for unknown indication
     Dosage: UNK
     Route: 065
  4. WARFARIN SODIUM [Concomitant]
     Active Substance: WARFARIN SODIUM
     Indication: Atrial fibrillation
  5. WARFARIN SODIUM [Concomitant]
     Active Substance: WARFARIN SODIUM
     Indication: Atrial fibrillation

REACTIONS (14)
  - Intracardiac thrombus [Fatal]
  - Embolic cerebellar infarction [Recovered/Resolved]
  - Coronary artery embolism [Recovering/Resolving]
  - No adverse event [Unknown]
  - Product prescribing issue [Unknown]
  - Erosive duodenitis [Unknown]
  - Oedema [Unknown]
  - Chest pain [Unknown]
  - Electrocardiogram abnormal [Unknown]
  - Troponin increased [Unknown]
  - Diplopia [Unknown]
  - Balance disorder [Unknown]
  - Unresponsive to stimuli [Unknown]
  - Cardiac arrest [Fatal]

NARRATIVE: CASE EVENT DATE: 20230401
